FAERS Safety Report 22204806 (Version 1)
Quarter: 2023Q2

REPORT INFORMATION
  Report Type: Spontaneous
  Country: US (occurrence: US)
  Receive Date: 20230413
  Receipt Date: 20230413
  Transmission Date: 20230721
  Serious: No
  Sender: FDA-Public Use
  Company Number: US-JNJFOC-20190936200

PATIENT
  Sex: Male

DRUGS (2)
  1. IMODIUM [Suspect]
     Active Substance: LOPERAMIDE HYDROCHLORIDE
     Indication: Diarrhoea
     Route: 048
  2. MYTESI [Suspect]
     Active Substance: CROFELEMER
     Indication: Diarrhoea
     Route: 065

REACTIONS (5)
  - Constipation [Unknown]
  - Abdominal distension [Unknown]
  - Back pain [Unknown]
  - Condition aggravated [Unknown]
  - Drug ineffective [Unknown]
